FAERS Safety Report 21915106 (Version 1)
Quarter: 2023Q1

REPORT INFORMATION
  Report Type: Spontaneous
  Country: US (occurrence: US)
  Receive Date: 20230126
  Receipt Date: 20230126
  Transmission Date: 20230418
  Serious: No
  Sender: FDA-Public Use
  Company Number: US-CATALYST PHARMACEUTICALS, INC-2022CAT00079

PATIENT
  Age: 65 Year
  Sex: Male
  Weight: 78.231 kg

DRUGS (3)
  1. FIRDAPSE [Suspect]
     Active Substance: AMIFAMPRIDINE PHOSPHATE
     Indication: Myasthenic syndrome
     Dosage: 20 MG, 4X/DAY
     Dates: start: 201902
  2. PYRIDOSTIGMINE [Concomitant]
     Active Substance: PYRIDOSTIGMINE
     Dosage: 60 MG
  3. UNSPECIFIED PROBIOTIC [Concomitant]
     Dosage: UNK
     Dates: start: 2021

REACTIONS (3)
  - COVID-19 [Recovered/Resolved]
  - Therapeutic product effect incomplete [Not Recovered/Not Resolved]
  - Anosmia [Recovered/Resolved]

NARRATIVE: CASE EVENT DATE: 20190201
